FAERS Safety Report 25826167 (Version 1)
Quarter: 2025Q3

REPORT INFORMATION
  Report Type: Report from Study
  Country: US (occurrence: US)
  Receive Date: 20250919
  Receipt Date: 20250919
  Transmission Date: 20251021
  Serious: Yes (Other)
  Sender: ABBVIE
  Company Number: US-ABBVIE-6464698

PATIENT
  Sex: Male

DRUGS (1)
  1. CREON [Suspect]
     Active Substance: PANCRELIPASE AMYLASE\PANCRELIPASE LIPASE\PANCRELIPASE PROTEASE
     Indication: Product used for unknown indication
     Route: 048

REACTIONS (12)
  - Colon cancer [Not Recovered/Not Resolved]
  - Illness [Unknown]
  - Hypoacusis [Unknown]
  - Diarrhoea [Unknown]
  - Prostate cancer [Unknown]
  - Gastric cancer [Unknown]
  - Pleural effusion [Unknown]
  - Lymphoma [Unknown]
  - Duodenogastric reflux [Unknown]
  - Pain [Unknown]
  - Fall [Unknown]
  - Drug ineffective [Unknown]
